FAERS Safety Report 7987628-7 (Version None)
Quarter: 2011Q4

REPORT INFORMATION
  Report Type: 
  Country: None (occurrence: None)
  Receive Date: 20111216
  Receipt Date: 20101122
  Transmission Date: 20120403
  Serious: No
  Sender: FDA-Public Use
  Company Number: US-BRISTOL-MYERS SQUIBB COMPANY-15291297

PATIENT
  Age: 33 Year
  Sex: Female

DRUGS (1)
  1. ABILIFY [Suspect]
     Dosage: TAKEN COUPLE OF YEARS
     Route: 048
     Dates: start: 20040401

REACTIONS (2)
  - DYSPHAGIA [None]
  - ATTENTION-SEEKING BEHAVIOUR [None]
